FAERS Safety Report 10758511 (Version 4)
Quarter: 2015Q1

REPORT INFORMATION
  Report Type: Report from Study
  Country: CA (occurrence: CA)
  Receive Date: 20150203
  Receipt Date: 20150309
  Transmission Date: 20150721
  Serious: Yes (Death)
  Sender: FDA-Public Use
  Company Number: CA-SA-2015SA012219

PATIENT
  Age: 39 Year
  Sex: Female

DRUGS (3)
  1. EFFEXOR [Concomitant]
     Active Substance: VENLAFAXINE HYDROCHLORIDE
  2. ALERTEC [Concomitant]
     Active Substance: MODAFINIL
  3. TERIFLUNOMIDE [Suspect]
     Active Substance: TERIFLUNOMIDE
     Indication: RELAPSING-REMITTING MULTIPLE SCLEROSIS
     Route: 048
     Dates: start: 20140925, end: 201412

REACTIONS (1)
  - Death [Fatal]

NARRATIVE: CASE EVENT DATE: 201412
